FAERS Safety Report 8891156 (Version 2)
Quarter: 2014Q2

REPORT INFORMATION
  Report Type: Report from Study
  Country: US (occurrence: US)
  Receive Date: 20121107
  Receipt Date: 20131018
  Transmission Date: 20141212
  Serious: Yes (Hospitalization)
  Sender: FDA-Public Use
  Company Number: US-PFIZER INC-2012274728

PATIENT
  Age: 29 Year
  Sex: Female

DRUGS (6)
  1. DEPO-MEDROL [Suspect]
     Indication: ANALGESIC THERAPY
     Dosage: 80 MG
     Route: 028
     Dates: start: 20091123
  2. DEPO-MEDROL [Suspect]
     Dosage: 80 MG
     Route: 028
     Dates: start: 20091216
  3. LIDOCAINE [Concomitant]
     Indication: ANALGESIC THERAPY
     Dosage: 1.5 CC OF 1%
     Route: 058
     Dates: start: 20091123
  4. LIDOCAINE [Concomitant]
     Dosage: 1.5 CC OF 1%
     Route: 058
     Dates: start: 20091216
  5. OMNIPAQUE-180 [Concomitant]
     Indication: X-RAY
     Dosage: 2-CC QUANTITY
     Dates: start: 20091123
  6. OMNIPAQUE-180 [Concomitant]
     Dosage: 1-CC QUANTITY
     Dates: start: 20091216

REACTIONS (2)
  - Incorrect route of drug administration [Unknown]
  - Spinal cord injury cervical [Unknown]
